FAERS Safety Report 9583939 (Version 1)
Quarter: 2013Q4

REPORT INFORMATION
  Report Type: Spontaneous
  Country: US (occurrence: US)
  Receive Date: 20131002
  Receipt Date: 20131002
  Transmission Date: 20140711
  Serious: No
  Sender: FDA-Public Use
  Company Number: US-AMGEN-USASP2013051311

PATIENT
  Age: 73 Year
  Sex: Female

DRUGS (5)
  1. ENBREL [Suspect]
     Indication: PRODUCT USED FOR UNKNOWN INDICATION
     Dosage: 50 MG, QWK
     Route: 058
  2. ATACAND HCT [Concomitant]
     Dosage: 16-12.5
     Route: 048
  3. PREDNISONE [Concomitant]
     Dosage: 1 MG, UNK
     Route: 048
  4. HYDROCHLOROTH [Concomitant]
     Dosage: 50 MG, UNK
     Route: 048
  5. SIMVASTATIN [Concomitant]
     Dosage: 10 MG, UNK
     Route: 048

REACTIONS (2)
  - Injection site bruising [Unknown]
  - Injection site swelling [Unknown]
